FAERS Safety Report 6342901-3 (Version None)
Quarter: 2009Q3

REPORT INFORMATION
  Report Type: 
  Country: None (occurrence: None)
  Receive Date: 20090908
  Receipt Date: 20090831
  Transmission Date: 20100115
  Serious: Yes (Hospitalization)
  Sender: FDA-Public Use
  Company Number: JP-BRISTOL-MYERS SQUIBB COMPANY-14431068

PATIENT
  Age: 59 Year
  Sex: Male
  Weight: 48 kg

DRUGS (12)
  1. ERBITUX [Suspect]
     Indication: COLON CANCER
     Dosage: 08OCT-14OCT/1IN1WK,250MG/M2;29OCT08-25DEC08/1IN2WK,250MG/M2; 13JAN09-ONG,250MG/M2,1IN2WK.
     Route: 041
     Dates: start: 20081001, end: 20090630
  2. IRINOTECAN HCL [Suspect]
     Indication: COLON CANCER
     Dosage: III INFN-14OCT08;IV 29OCT08; V 11NOV08; VI 25NOV08
     Route: 041
     Dates: start: 20081001, end: 20090630
  3. CHLOR-TRIMETON [Concomitant]
     Indication: PREMEDICATION
     Route: 042
  4. DECADRON [Concomitant]
     Indication: PREMEDICATION
     Route: 042
     Dates: start: 20081001
  5. ZANTAC [Concomitant]
     Indication: PREMEDICATION
     Route: 042
     Dates: start: 20081001
  6. KYTRIL [Concomitant]
     Indication: PROPHYLAXIS OF NAUSEA AND VOMITING
     Route: 042
     Dates: start: 20081001
  7. OXYCONTIN [Concomitant]
     Indication: CANCER PAIN
     Dosage: 20MG TAKEN FROM 15OCT08. TAB
     Route: 048
     Dates: start: 20080922
  8. MYSLEE [Concomitant]
     Indication: INSOMNIA
     Dosage: 1 DF - 1 TABS
     Route: 048
  9. LOXONIN [Concomitant]
     Indication: CANCER PAIN
     Route: 048
  10. CYTOTEC [Concomitant]
     Indication: CANCER PAIN
     Route: 048
  11. ALDACTONE [Concomitant]
     Indication: OEDEMA
     Route: 048
  12. LASIX [Concomitant]
     Indication: OEDEMA
     Route: 048

REACTIONS (2)
  - DECREASED APPETITE [None]
  - MALAISE [None]
